FAERS Safety Report 25908228 (Version 1)
Quarter: 2025Q4

REPORT INFORMATION
  Report Type: Spontaneous
  Country: US (occurrence: US)
  Receive Date: 20251010
  Receipt Date: 20251010
  Transmission Date: 20260118
  Serious: Yes (Other)
  Sender: NOVO NORDISK
  Company Number: US-NOVOPROD-1535317

PATIENT
  Sex: Female

DRUGS (1)
  1. WEGOVY [Suspect]
     Active Substance: SEMAGLUTIDE
     Indication: Weight control
     Dosage: 2.4 MG, QW EVERY SUNDAY
     Route: 058
     Dates: start: 202304

REACTIONS (4)
  - Cataract operation [Unknown]
  - Glaucoma surgery [Unknown]
  - Eye disorder [Unknown]
  - Condition aggravated [Unknown]
